FAERS Safety Report 6388097-3 (Version None)
Quarter: 2009Q4

REPORT INFORMATION
  Report Type: 
  Country: None (occurrence: None)
  Receive Date: 20091005
  Receipt Date: 20090928
  Transmission Date: 20100525
  Serious: Yes (Hospitalization)
  Sender: FDA-Public Use
  Company Number: FR-B.I. PHARMACEUTICALS,INC./RIDGEFIELD-2009-FF-00658FF

PATIENT
  Sex: Male

DRUGS (7)
  1. MICARDIS [Suspect]
     Route: 048
     Dates: end: 20080927
  2. TEGRETOL [Concomitant]
     Indication: PSYCHOTIC DISORDER
     Dosage: 600 MG
     Route: 048
  3. HALDOL [Concomitant]
     Indication: PSYCHOTIC DISORDER
     Route: 048
  4. LOGIMAX [Concomitant]
     Indication: HYPERTENSION
  5. ARTANE [Concomitant]
     Indication: PSYCHOTIC DISORDER
  6. TAHOR [Concomitant]
     Indication: PSYCHOTIC DISORDER
     Route: 048
  7. RIVOTRIL [Concomitant]
     Indication: PSYCHOTIC DISORDER
     Route: 048

REACTIONS (1)
  - HYPONATRAEMIA [None]
